FAERS Safety Report 5447493-9 (Version None)
Quarter: 2007Q3

REPORT INFORMATION
  Report Type: 
  Country: None (occurrence: None)
  Receive Date: 20070910
  Receipt Date: 20070831
  Transmission Date: 20080115
  Serious: No
  Sender: FDA-Public Use
  Company Number: B0476070A

PATIENT
  Age: 58 Year
  Sex: Female
  Weight: 64 kg

DRUGS (16)
  1. VALTREX [Suspect]
     Indication: ORAL HERPES
     Dosage: 500MG TWICE PER DAY
     Route: 048
     Dates: start: 20070612, end: 20070616
  2. INTERFERON BETA [Suspect]
     Indication: HEPATITIS C
     Dosage: 600IU3 PER DAY
     Route: 042
     Dates: start: 20070606, end: 20070618
  3. URSO 250 [Concomitant]
     Indication: HEPATITIS C
     Dosage: 600MG PER DAY
     Route: 048
  4. AMLODIPINE [Concomitant]
     Indication: HYPERTENSION
     Dosage: 5MG PER DAY
     Route: 048
     Dates: start: 20070623
  5. TELMISARTAN [Concomitant]
     Route: 048
  6. PEG-INTRON [Concomitant]
     Indication: HEPATITIS C
     Route: 058
     Dates: start: 20070619
  7. LIVALO [Concomitant]
     Dosage: 1MG PER DAY
     Route: 048
  8. NORVASK [Concomitant]
     Indication: HYPERTENSION
     Dosage: 5MG PER DAY
     Route: 048
     Dates: end: 20070612
  9. MICARDIS [Concomitant]
     Indication: HYPERTENSION
     Dosage: 20MG PER DAY
     Route: 048
     Dates: start: 20070613, end: 20070622
  10. CEFMETAZON [Concomitant]
     Indication: HEPATITIS C
     Dosage: 2G PER DAY
     Route: 042
     Dates: start: 20070605, end: 20070608
  11. MAGNESIUM OXIDE [Concomitant]
     Indication: CONSTIPATION
     Dosage: .99G PER DAY
     Route: 048
     Dates: start: 20070616, end: 20070704
  12. FAMOTIDINE [Concomitant]
     Indication: GASTRITIS
     Dosage: 20MG PER DAY
     Route: 048
     Dates: start: 20070606
  13. BIOFERMIN [Concomitant]
     Indication: CONSTIPATION
     Dosage: 3G PER DAY
     Route: 048
     Dates: start: 20070611
  14. ANTIDIARRHEAL [Concomitant]
     Dosage: 112.5MG PER DAY
     Route: 048
     Dates: start: 20070611, end: 20070613
  15. VOLTAREN [Concomitant]
     Indication: HEPATITIS C
     Route: 054
     Dates: start: 20070606, end: 20070611
  16. REBETOL [Concomitant]
     Indication: HEPATITIS C
     Dosage: 800MG PER DAY
     Route: 048
     Dates: start: 20070619

REACTIONS (2)
  - BLOOD ALBUMIN DECREASED [None]
  - PROTEINURIA [None]
